FAERS Safety Report 24818215 (Version 1)
Quarter: 2025Q1

REPORT INFORMATION
  Report Type: Spontaneous
  Country: GR (occurrence: GR)
  Receive Date: 20250108
  Receipt Date: 20250108
  Transmission Date: 20250409
  Serious: Yes (Death, Hospitalization, Other)
  Sender: SANOFI AVENTIS
  Company Number: None

PATIENT
  Age: 87 Year
  Sex: Female
  Weight: 65 kg

DRUGS (9)
  1. DUPIXENT [Suspect]
     Active Substance: DUPILUMAB
     Indication: Dermatitis atopic
     Route: 058
     Dates: start: 20240927, end: 20240927
  2. CARVEDILOL [Concomitant]
     Active Substance: CARVEDILOL
     Indication: Ischaemic cardiomyopathy
     Route: 048
  3. PLENDIL [Concomitant]
     Active Substance: FELODIPINE
  4. DAPAGLIFLOZIN [Concomitant]
     Active Substance: DAPAGLIFLOZIN
  5. XARELTO [Concomitant]
     Active Substance: RIVAROXABAN
  6. EPLERENONE [Concomitant]
     Active Substance: EPLERENONE
  7. DIGOXIN [Concomitant]
     Active Substance: DIGOXIN
  8. ALLOPURINOL [Concomitant]
     Active Substance: ALLOPURINOL
  9. FENOFIBRATE\SIMVASTATIN [Concomitant]
     Active Substance: FENOFIBRATE\SIMVASTATIN

REACTIONS (1)
  - Pulmonary oedema [Fatal]

NARRATIVE: CASE EVENT DATE: 20240930
